FAERS Safety Report 7689860-9 (Version None)
Quarter: 2011Q3

REPORT INFORMATION
  Report Type: 
  Country: None (occurrence: None)
  Receive Date: 20110818
  Receipt Date: 20110809
  Transmission Date: 20111222
  Serious: Yes (Hospitalization)
  Sender: FDA-Public Use
  Company Number: US-BIOGENIDEC-2011BI030033

PATIENT
  Age: 56 Year
  Sex: Female

DRUGS (1)
  1. AVONEX [Suspect]
     Indication: MULTIPLE SCLEROSIS
     Route: 030
     Dates: start: 20060526

REACTIONS (6)
  - RENAL IMPAIRMENT [None]
  - RENAL DISORDER [None]
  - THYROID DISORDER [None]
  - BLOOD POTASSIUM INCREASED [None]
  - KIDNEY INFECTION [None]
  - PYREXIA [None]
